FAERS Safety Report 6255101-2 (Version None)
Quarter: 2009Q3

REPORT INFORMATION
  Report Type: 
  Country: None (occurrence: None)
  Receive Date: 20090702
  Receipt Date: 20090619
  Transmission Date: 20100115
  Serious: Yes (Other)
  Sender: FDA-Public Use
  Company Number: GB-PFIZER INC-2009227539

PATIENT
  Age: 29 Year

DRUGS (2)
  1. PHENYTOIN AND PHENYTOIN SODIUM [Suspect]
     Indication: EPILEPSY
     Dosage: 500 MG, UNK
     Dates: start: 19990101
  2. TOPIRAMATE [Concomitant]
     Dosage: 200MG MORNING, 300MG NIGHT
     Dates: start: 20060101

REACTIONS (2)
  - DRUG TOXICITY [None]
  - PRIAPISM [None]
